FAERS Safety Report 8552815-6 (Version None)
Quarter: 2012Q3

REPORT INFORMATION
  Report Type: 
  Country: None (occurrence: None)
  Receive Date: 20120731
  Receipt Date: 20120726
  Transmission Date: 20120928
  Serious: Yes (Life-Threatening)
  Sender: FDA-Public Use
  Company Number: PHHY2012CA062378

PATIENT
  Sex: Male

DRUGS (2)
  1. CLOZARIL [Suspect]
     Indication: SCHIZOPHRENIA
     Dosage: 400 MG, QHS
     Route: 048
     Dates: start: 20030501, end: 20120601
  2. LORAZEPAM [Concomitant]
     Dosage: UNK UKN, UNK

REACTIONS (2)
  - LEUKAEMIA [None]
  - PLATELET COUNT DECREASED [None]
